FAERS Safety Report 14781523 (Version 1)
Quarter: 2018Q2

REPORT INFORMATION
  Report Type: Spontaneous
  Country: FR (occurrence: FR)
  Receive Date: 20180420
  Receipt Date: 20180420
  Transmission Date: 20180711
  Serious: Yes (Other)
  Sender: FDA-Public Use
  Company Number: FR-MERCK KGAA-2046105

PATIENT
  Age: 32 Year
  Sex: Female

DRUGS (5)
  1. NOVOTHYROX [Suspect]
     Active Substance: LEVOTHYROXINE SODIUM
  2. NOVOTHYROX [Suspect]
     Active Substance: LEVOTHYROXINE SODIUM
     Dates: start: 20170907
  3. NOVOTHYROX [Suspect]
     Active Substance: LEVOTHYROXINE SODIUM
     Indication: PRODUCT USED FOR UNKNOWN INDICATION
     Dates: start: 20170428
  4. NOVOTHYROX [Suspect]
     Active Substance: LEVOTHYROXINE SODIUM
  5. NOVOTHYROX [Suspect]
     Active Substance: LEVOTHYROXINE SODIUM

REACTIONS (15)
  - Irritability [None]
  - Hypothyroidism [None]
  - Disturbance in attention [None]
  - Fibrin D dimer increased [None]
  - Asthenia [Recovering/Resolving]
  - Somnolence [None]
  - Chest discomfort [Recovering/Resolving]
  - Fatigue [None]
  - C-reactive protein increased [None]
  - Dizziness [Recovering/Resolving]
  - Gastrointestinal disorder [None]
  - Loss of personal independence in daily activities [None]
  - Palpitations [Recovering/Resolving]
  - Arrhythmia [None]
  - Alopecia [None]

NARRATIVE: CASE EVENT DATE: 2017
